FAERS Safety Report 18349369 (Version 1)
Quarter: 2020Q4

REPORT INFORMATION
  Report Type: Other
  Country: NO (occurrence: NO)
  Receive Date: 20201006
  Receipt Date: 20201006
  Transmission Date: 20210114
  Serious: Yes (Other)
  Sender: FDA-Public Use
  Company Number: NO-HQ SPECIALTY-NO-2020INT000120

PATIENT
  Age: 2 Year
  Sex: Female

DRUGS (1)
  1. DEXMEDETOMIDINE HYDROCHLORIDE. [Suspect]
     Active Substance: DEXMEDETOMIDINE HYDROCHLORIDE
     Indication: SEDATIVE THERAPY
     Dosage: 4 ?G/KG, INTERPRETED AS ADMINISTERED INTRANASALLY AT 09.15 AM. (70 MCG, 1 TOTAL)
     Route: 045
     Dates: start: 2020, end: 2020

REACTIONS (5)
  - Product administered to patient of inappropriate age [Recovered/Resolved]
  - Syncope [Recovered/Resolved]
  - Bradycardia [Recovered/Resolved]
  - Product use issue [Unknown]
  - Overdose [Unknown]
